FAERS Safety Report 7522862-1 (Version None)
Quarter: 2011Q2

REPORT INFORMATION
  Report Type: 
  Country: None (occurrence: None)
  Receive Date: 20110603
  Receipt Date: 20110530
  Transmission Date: 20111010
  Serious: Yes (Other)
  Sender: FDA-Public Use
  Company Number: BR-ABBOTT-11P-020-0729379-00

PATIENT
  Sex: Female

DRUGS (2)
  1. CITALOPRAM HYDROBROMIDE [Concomitant]
     Indication: BLOOD CALCIUM
  2. HUMIRA [Suspect]
     Indication: CROHN'S DISEASE
     Route: 058

REACTIONS (5)
  - DERMATITIS [None]
  - DEAFNESS [None]
  - EXTERNAL EAR INFLAMMATION [None]
  - EYE INFLAMMATION [None]
  - BLINDNESS [None]
